FAERS Safety Report 5340516-7 (Version None)
Quarter: 2007Q2

REPORT INFORMATION
  Report Type: 
  Country: None (occurrence: None)
  Receive Date: 20070531
  Receipt Date: 20070521
  Transmission Date: 20071010
  Serious: Yes (Hospitalization, Other)
  Sender: FDA-Public Use
  Company Number: US-PFIZER INC-2006104231

PATIENT
  Sex: Female
  Weight: 91.6 kg

DRUGS (5)
  1. CELEBREX [Suspect]
     Indication: RHEUMATOID ARTHRITIS
     Route: 048
  2. CELEBREX [Suspect]
     Indication: ARTHRALGIA
  3. BEXTRA [Suspect]
     Indication: RHEUMATOID ARTHRITIS
     Route: 048
  4. BEXTRA [Suspect]
     Indication: ARTHRALGIA
  5. VIOXX [Suspect]
     Indication: RHEUMATOID ARTHRITIS
     Route: 048

REACTIONS (4)
  - CEREBROVASCULAR ACCIDENT [None]
  - DEPRESSION [None]
  - HEMIPARESIS [None]
  - MYOCARDIAL INFARCTION [None]
